FAERS Safety Report 21998833 (Version 1)
Quarter: 2023Q1

REPORT INFORMATION
  Report Type: Spontaneous
  Country: US (occurrence: None)
  Receive Date: 20230214
  Receipt Date: 20230214
  Transmission Date: 20230417
  Serious: No
  Sender: FDA-Public Use
  Company Number: None

PATIENT
  Age: 87 Year
  Sex: Male

DRUGS (1)
  1. ERLEADA [Suspect]
     Active Substance: APALUTAMIDE
     Indication: Prostate cancer
     Dosage: 4 TABLETS ONCE DAILY BY MOUTH
     Route: 048
     Dates: start: 20220815, end: 20230201

REACTIONS (1)
  - Thrombosis [None]

NARRATIVE: CASE EVENT DATE: 20230201
